FAERS Safety Report 20689988 (Version 1)
Quarter: 2022Q2

REPORT INFORMATION
  Report Type: Spontaneous
  Country: CN (occurrence: CN)
  Receive Date: 20220408
  Receipt Date: 20220408
  Transmission Date: 20220721
  Serious: Yes (Other)
  Sender: FDA-Public Use
  Company Number: CN-PFIZER INC-202200512391

PATIENT
  Age: 10 Year
  Sex: Male

DRUGS (2)
  1. METHOTREXATE [Suspect]
     Active Substance: METHOTREXATE
     Indication: Chemotherapy
     Dosage: 3.5 G, 1X/DAY
     Route: 041
     Dates: start: 20220314, end: 20220314
  2. DEXTROSE [Concomitant]
     Active Substance: DEXTROSE
     Indication: Vehicle solution use
     Dosage: 79 ML, 1X/DAY
     Route: 041
     Dates: start: 20220314, end: 20220314

REACTIONS (4)
  - Drug-induced liver injury [Recovering/Resolving]
  - Proctitis [Recovering/Resolving]
  - Anal pruritus [Recovering/Resolving]
  - Dyschezia [Recovering/Resolving]

NARRATIVE: CASE EVENT DATE: 20220318
